FAERS Safety Report 7936191-5 (Version None)
Quarter: 2011Q4

REPORT INFORMATION
  Report Type: 
  Country: None (occurrence: None)
  Receive Date: 20111123
  Receipt Date: 20111117
  Transmission Date: 20120403
  Serious: Yes (Other)
  Sender: FDA-Public Use
  Company Number: ES-ABBOTT-11P-144-0875077-00

PATIENT
  Age: 45 Year
  Sex: Female
  Weight: 57 kg

DRUGS (5)
  1. HUMIRA [Suspect]
     Indication: CROHN'S DISEASE
     Route: 058
     Dates: start: 20060101
  2. FLUOXETINE [Concomitant]
     Indication: ANXIETY
     Route: 048
     Dates: start: 20050101
  3. LEXATINR [Concomitant]
     Indication: ANXIETY
     Dosage: 1 IN 1 DAY
     Route: 048
     Dates: start: 20050101
  4. IMURAN [Concomitant]
     Indication: CROHN'S DISEASE
     Dates: start: 20040101
  5. EUTIROXR [Concomitant]
     Indication: THYROID DISORDER
     Route: 048
     Dates: start: 20040101

REACTIONS (6)
  - LABORATORY TEST ABNORMAL [None]
  - PANCREATIC ABSCESS [None]
  - DIVERTICULITIS [None]
  - LIPOMA [None]
  - TRANSAMINASES INCREASED [None]
  - PANCREATIC CYST [None]
